FAERS Safety Report 13003047 (Version 1)
Quarter: 2016Q4

REPORT INFORMATION
  Report Type: Spontaneous
  Country: US (occurrence: US)
  Receive Date: 20161206
  Receipt Date: 20161206
  Transmission Date: 20170207
  Serious: No
  Sender: FDA-Public Use
  Company Number: None

PATIENT

DRUGS (2)
  1. CYCLOPENTOLATE HCL OPTH SOLN AKORN [Suspect]
     Active Substance: CYCLOPENTOLATE HYDROCHLORIDE
  2. CYCLOPENTOLATE HCL OPTH SOLN AKORN [Suspect]
     Active Substance: CYCLOPENTOLATE HYDROCHLORIDE
     Route: 047

REACTIONS (2)
  - Product packaging confusion [None]
  - Intercepted product selection error [None]

NARRATIVE: CASE EVENT DATE: 20161206
